FAERS Safety Report 7135047-8 (Version None)
Quarter: 2010Q4

REPORT INFORMATION
  Report Type: 
  Country: None (occurrence: None)
  Receive Date: 20101118
  Receipt Date: 20101104
  Transmission Date: 20110411
  Serious: Yes (Hospitalization)
  Sender: FDA-Public Use
  Company Number: 2010AP002357

PATIENT
  Age: 68 Year
  Sex: Female

DRUGS (7)
  1. GABAPENTIN [Suspect]
  2. MORPHINE SULFATE [Suspect]
     Indication: BONE PAIN
  3. MORPHINE SULFATE [Suspect]
     Dates: start: 20041201
  4. IBANDRONIC ACID SENNA (SENNA) [Concomitant]
  5. BANDRONIC ACID) [Concomitant]
  6. CLAVULANATE POTASSIUM/AMOXICILLLIN TRIHYDRATE (CLAVULANATE POTASSIUM/A [Concomitant]
  7. INVESTIGATIONAL DRUG (INVESTIGATIONAL DRUG) [Concomitant]

REACTIONS (4)
  - CONSTIPATION [None]
  - DEHYDRATION [None]
  - DISEASE PROGRESSION [None]
  - DIZZINESS [None]
